FAERS Safety Report 11468593 (Version 2)
Quarter: 2015Q3

REPORT INFORMATION
  Report Type: Spontaneous
  Country: JP (occurrence: JP)
  Receive Date: 20150908
  Receipt Date: 20150911
  Transmission Date: 20151125
  Serious: Yes (Other)
  Sender: FDA-Public Use
  Company Number: JP-GSKJP-JP2015JPN124340AA

PATIENT
  Age: 90 Year
  Sex: Male

DRUGS (1)
  1. VOTRIENT [Suspect]
     Active Substance: PAZOPANIB HYDROCHLORIDE
     Indication: RENAL CELL CARCINOMA STAGE IV
     Dosage: 400 MG, 1D
     Route: 048
     Dates: start: 20140630, end: 20141222

REACTIONS (11)
  - Pleural effusion [Unknown]
  - Proteinuria [Unknown]
  - Platelet count decreased [Unknown]
  - Hypothyroidism [Unknown]
  - Diarrhoea [Unknown]
  - Metastases to lung [Unknown]
  - Fatigue [Unknown]
  - Malaise [Unknown]
  - Hypertension [Unknown]
  - Lymphangiosis carcinomatosa [Unknown]
  - Blood bilirubin increased [Unknown]

NARRATIVE: CASE EVENT DATE: 20141222
